FAERS Safety Report 4488076-7 (Version None)
Quarter: 2004Q4

REPORT INFORMATION
  Report Type: 
  Country: None (occurrence: None)
  Receive Date: 20041025
  Receipt Date: 20041013
  Transmission Date: 20050328
  Serious: Yes (Other)
  Sender: FDA-Public Use
  Company Number: DEU-2004-0000965

PATIENT
  Age: 49 Year
  Sex: Male

DRUGS (3)
  1. MORPHINE SULFATE INJ [Suspect]
     Dosage: INTRATHECAL
     Route: 037
  2. SEVREDOL (MORPHINE SULFATE) [Concomitant]
  3. DROPERIDOL [Concomitant]

REACTIONS (3)
  - ANDROGEN DEFICIENCY [None]
  - GYNAECOMASTIA [None]
  - SURGICAL PROCEDURE REPEATED [None]
